FAERS Safety Report 8489499-1 (Version None)
Quarter: 2012Q2

REPORT INFORMATION
  Report Type: 
  Country: None (occurrence: None)
  Receive Date: 20120628
  Receipt Date: 20120628
  Transmission Date: 20120825
  Serious: Yes (Other)
  Sender: FDA-Public Use
  Company Number: None

PATIENT
  Age: 38 Year
  Sex: Male
  Weight: 77.1115 kg

DRUGS (2)
  1. PROPECIA [Suspect]
     Indication: HAEMATOSPERMIA
     Dosage: 1
  2. PROPECIA [Suspect]
     Indication: BLOOD URINE PRESENT
     Dosage: 1

REACTIONS (7)
  - ASTHENIA [None]
  - PERSONALITY DISORDER [None]
  - LOSS OF LIBIDO [None]
  - IRRITABILITY [None]
  - FATIGUE [None]
  - ERECTILE DYSFUNCTION [None]
  - SUICIDAL IDEATION [None]
